FAERS Safety Report 10155917 (Version 1)
Quarter: 2014Q2

REPORT INFORMATION
  Report Type: Spontaneous
  Country: FR (occurrence: FR)
  Receive Date: 20140506
  Receipt Date: 20140506
  Transmission Date: 20141212
  Serious: Yes (Other)
  Sender: FDA-Public Use
  Company Number: PHHY2014FR053924

PATIENT
  Age: 16 Year
  Sex: Female

DRUGS (2)
  1. RITALINE [Suspect]
     Indication: ATTENTION DEFICIT/HYPERACTIVITY DISORDER
     Dosage: 30 MG, DAILY
     Dates: start: 201401
  2. RITALINE [Suspect]
     Indication: OFF LABEL USE

REACTIONS (1)
  - Pituitary tumour benign [Unknown]
